FAERS Safety Report 9469866 (Version 1)
Quarter: 2013Q3

REPORT INFORMATION
  Report Type: Spontaneous
  Country: CZ (occurrence: CZ)
  Receive Date: 20130822
  Receipt Date: 20130822
  Transmission Date: 20140515
  Serious: Yes (Hospitalization)
  Sender: FDA-Public Use
  Company Number: CZ-RANBAXY-2013R1-72350

PATIENT
  Age: 35 Year
  Sex: Female

DRUGS (3)
  1. CLINDAMYCIN [Suspect]
     Indication: ENDOMETRITIS
     Dosage: UNK
     Route: 065
  2. GENTAMICIN [Suspect]
     Indication: ENDOMETRITIS
     Route: 065
  3. CEFOTAXIME [Suspect]
     Indication: ENDOMETRITIS
     Route: 065

REACTIONS (1)
  - Toxic epidermal necrolysis [Recovering/Resolving]
